FAERS Safety Report 5541151-8 (Version None)
Quarter: 2007Q4

REPORT INFORMATION
  Report Type: 
  Country: None (occurrence: None)
  Receive Date: 20071209
  Receipt Date: 20061222
  Transmission Date: 20080405
  Serious: No
  Sender: FDA-Public Use
  Company Number: US-AMGEN-KDL204748

PATIENT
  Sex: Female

DRUGS (4)
  1. ENBREL [Suspect]
     Indication: RHEUMATOID ARTHRITIS
     Route: 058
     Dates: start: 20030101
  2. PLAQUENIL [Concomitant]
     Dates: start: 20030101
  3. SULFASALAZINE [Concomitant]
     Dates: start: 20030101
  4. METHOTREXATE [Concomitant]
     Dates: start: 20030101

REACTIONS (2)
  - BONE PAIN [None]
  - FATIGUE [None]
